FAERS Safety Report 15477920 (Version 1)
Quarter: 2018Q4

REPORT INFORMATION
  Report Type: Spontaneous
  Country: GB (occurrence: GB)
  Receive Date: 20181009
  Receipt Date: 20181009
  Transmission Date: 20190205
  Serious: Yes (Hospitalization, Other)
  Sender: FDA-Public Use
  Company Number: GB-SA-2018SA276189

PATIENT
  Age: 65 Year
  Sex: Male
  Weight: 65 kg

DRUGS (6)
  1. BUSCOPAN [Concomitant]
     Active Substance: BUTYLSCOPOLAMINE BROMIDE
  2. DILTIAZEM. [Concomitant]
     Active Substance: DILTIAZEM
  3. ALIROCUMAB [Suspect]
     Active Substance: ALIROCUMAB
     Indication: BLOOD CHOLESTEROL INCREASED
     Route: 051
     Dates: start: 20180703, end: 20180902
  4. MONOMIL [Concomitant]
     Active Substance: ISOSORBIDE MONONITRATE
  5. TRAMADOL. [Concomitant]
     Active Substance: TRAMADOL
  6. PARACETAMOL [Concomitant]
     Active Substance: ACETAMINOPHEN

REACTIONS (4)
  - Nocturia [Unknown]
  - Myalgia [Recovered/Resolved with Sequelae]
  - Bladder pain [Recovered/Resolved]
  - Urine output increased [Recovered/Resolved]

NARRATIVE: CASE EVENT DATE: 20180816
